FAERS Safety Report 23588506 (Version 1)
Quarter: 2024Q1

REPORT INFORMATION
  Report Type: Spontaneous
  Country: IE (occurrence: IE)
  Receive Date: 20240302
  Receipt Date: 20240302
  Transmission Date: 20240410
  Serious: Yes (Hospitalization, Other)
  Sender: FDA-Public Use
  Company Number: IE-MLMSERVICE-20240214-4836123-1

PATIENT
  Age: 63 Year
  Sex: Male

DRUGS (9)
  1. EPLERENONE [Suspect]
     Active Substance: EPLERENONE
     Indication: Diuretic therapy
     Dates: start: 2022
  2. BUMETANIDE [Suspect]
     Active Substance: BUMETANIDE
     Indication: Diuretic therapy
     Dates: start: 2022
  3. EVEROLIMUS [Concomitant]
     Active Substance: EVEROLIMUS
     Indication: Metastases to peritoneum
  4. OXYGEN [Concomitant]
     Active Substance: OXYGEN
     Indication: Oxygen therapy
     Route: 045
     Dates: start: 202210, end: 2022
  5. LANREOTIDE ACETATE [Concomitant]
     Active Substance: LANREOTIDE ACETATE
     Indication: Neuroendocrine tumour of the rectum
     Dates: start: 2021
  6. EVEROLIMUS [Concomitant]
     Active Substance: EVEROLIMUS
     Indication: Metastases to liver
  7. LANREOTIDE ACETATE [Concomitant]
     Active Substance: LANREOTIDE ACETATE
     Indication: Metastases to peritoneum
     Dates: start: 2021
  8. LANREOTIDE ACETATE [Concomitant]
     Active Substance: LANREOTIDE ACETATE
     Indication: Metastases to liver
     Dates: start: 2021
  9. OXYGEN [Concomitant]
     Active Substance: OXYGEN
     Indication: Oxygen therapy
     Dosage: LONG-TERM
     Route: 045
     Dates: start: 2022

REACTIONS (2)
  - Presyncope [Unknown]
  - Hypokalaemia [Unknown]

NARRATIVE: CASE EVENT DATE: 20230301
